FAERS Safety Report 6128546-9 (Version None)
Quarter: 2009Q1

REPORT INFORMATION
  Report Type: 
  Country: None (occurrence: None)
  Receive Date: 20090319
  Receipt Date: 20090313
  Transmission Date: 20090719
  Serious: Yes (Other)
  Sender: FDA-Public Use
  Company Number: VAL_00239_2009

PATIENT
  Age: 19 Year
  Sex: Female

DRUGS (1)
  1. CARBAMAZEPINE [Suspect]
     Indication: DRUG USE FOR UNKNOWN INDICATION
     Dosage: (200 MG), (400 MG)

REACTIONS (5)
  - ANAEMIA [None]
  - CENTRAL NERVOUS SYSTEM LESION [None]
  - DRUG WITHDRAWAL SYNDROME [None]
  - FEAR [None]
  - SCHIZOAFFECTIVE DISORDER [None]
